FAERS Safety Report 6969874-4 (Version None)
Quarter: 2010Q3

REPORT INFORMATION
  Report Type: 
  Country: None (occurrence: None)
  Receive Date: 20100903
  Receipt Date: 20100827
  Transmission Date: 20110219
  Serious: Yes (Disabling, Other)
  Sender: FDA-Public Use
  Company Number: 016050

PATIENT
  Sex: Female
  Weight: 69.4003 kg

DRUGS (6)
  1. XYZAL [Suspect]
     Indication: RHINITIS PERENNIAL
     Dosage: 5 MG QD ORAL
     Route: 048
     Dates: start: 20100421, end: 20100521
  2. XYZAL [Suspect]
     Indication: RHINITIS SEASONAL
     Dosage: 5 MG QD ORAL
     Route: 048
     Dates: start: 20100421, end: 20100521
  3. ZETIA [Concomitant]
  4. PREMPRO [Concomitant]
  5. LUMIGAN [Concomitant]
  6. AZOPT [Concomitant]

REACTIONS (1)
  - OPTIC NERVE DISORDER [None]
